FAERS Safety Report 18281744 (Version 2)
Quarter: 2020Q4

REPORT INFORMATION
  Report Type: Report from Study
  Country: SI (occurrence: SI)
  Receive Date: 20200918
  Receipt Date: 20201125
  Transmission Date: 20210113
  Serious: Yes (Hospitalization, Disabling, Other)
  Sender: FDA-Public Use
  Company Number: SI-B.I. PHARMACEUTICALS,INC./RIDGEFIELD-2020-BI-046680

PATIENT
  Age: 77 Year
  Sex: Male

DRUGS (5)
  1. ASASANTIN [Suspect]
     Active Substance: ASPIRIN\DIPYRIDAMOLE
     Indication: CEREBROVASCULAR DISORDER
     Dates: start: 2009, end: 201903
  2. SORVASTA [Concomitant]
     Active Substance: ROSUVASTATIN CALCIUM
     Indication: STENOSIS
  3. LORISTA H [Concomitant]
     Active Substance: HYDROCHLOROTHIAZIDE\LOSARTAN POTASSIUM
     Indication: HYPERTENSION
     Dosage: IN THE MORNING
  4. PRADAXA [Suspect]
     Active Substance: DABIGATRAN ETEXILATE MESYLATE
     Indication: ATRIAL FIBRILLATION
     Dates: start: 201803
  5. KAMIREN XL [Concomitant]
     Indication: HYPERTENSION
     Dosage: IN THE EVENING

REACTIONS (14)
  - Haemorrhoidal haemorrhage [Recovering/Resolving]
  - Vitreous haemorrhage [Not Recovered/Not Resolved]
  - Vitreous haemorrhage [Not Recovered/Not Resolved]
  - Chronic kidney disease [Unknown]
  - Eye haemorrhage [Unknown]
  - Conjunctival haemorrhage [Unknown]
  - Vitreous detachment [Unknown]
  - Thrombocytopenia [Unknown]
  - Blindness unilateral [Not Recovered/Not Resolved]
  - Visual acuity reduced [Unknown]
  - Hypertension [Recovering/Resolving]
  - Visual acuity reduced [Unknown]
  - Visual impairment [Unknown]
  - Retinal haemorrhage [Unknown]

NARRATIVE: CASE EVENT DATE: 201803
